FAERS Safety Report 7600345-8 (Version None)
Quarter: 2011Q3

REPORT INFORMATION
  Report Type: 
  Country: None (occurrence: None)
  Receive Date: 20110711
  Receipt Date: 20110629
  Transmission Date: 20111222
  Serious: Yes (Death)
  Sender: FDA-Public Use
  Company Number: US-BAYER-2011-024052

PATIENT
  Age: 54 Year
  Sex: Male

DRUGS (1)
  1. BETASERON [Suspect]
     Indication: PRODUCT USED FOR UNKNOWN INDICATION
     Dosage: UNK UNK, UNK
     Route: 058

REACTIONS (3)
  - ARTERIOSCLEROSIS [None]
  - DIABETES MELLITUS [None]
  - MYOCARDIAL INFARCTION [None]
